FAERS Safety Report 5275948-9 (Version None)
Quarter: 2007Q1

REPORT INFORMATION
  Report Type: 
  Country: None (occurrence: None)
  Receive Date: 20070326
  Receipt Date: 20070320
  Transmission Date: 20070707
  Serious: Yes (Hospitalization)
  Sender: FDA-Public Use
  Company Number: AT-BRISTOL-MYERS SQUIBB COMPANY-13678339

PATIENT
  Age: 70 Year

DRUGS (4)
  1. CETUXIMAB [Suspect]
     Indication: COLON CANCER STAGE III
     Route: 042
     Dates: start: 20060824, end: 20070125
  2. OXALIPLATIN [Suspect]
     Indication: COLON CANCER STAGE III
     Route: 042
     Dates: start: 20060824, end: 20070125
  3. FLUOROURACIL [Suspect]
     Indication: COLON CANCER STAGE III
     Route: 042
     Dates: start: 20060824, end: 20070125
  4. FOLINIC ACID [Suspect]
     Indication: COLON CANCER STAGE III
     Route: 042
     Dates: start: 20060824, end: 20070125

REACTIONS (2)
  - NEUTROPENIA [None]
  - RENAL ABSCESS [None]
